FAERS Safety Report 11083667 (Version 3)
Quarter: 2015Q2

REPORT INFORMATION
  Report Type: Spontaneous
  Country: FR (occurrence: FR)
  Receive Date: 20150501
  Receipt Date: 20150609
  Transmission Date: 20150821
  Serious: Yes (Hospitalization)
  Sender: FDA-Public Use
  Company Number: FR-TEVA-558096ISR

PATIENT
  Age: 15 Year
  Sex: Female

DRUGS (2)
  1. ANTADYS [Suspect]
     Active Substance: FLURBIPROFEN
     Indication: DYSMENORRHOEA
     Dosage: 3 TABLETS 3 DAYS PER MONTH ON REQUEST
     Route: 048
     Dates: start: 20150213, end: 20150214
  2. IOMERON [Suspect]
     Active Substance: IOMEPROL
     Dosage: 350 MG IODE/ML, UNIQUE DOSE
     Route: 042
     Dates: start: 20150217, end: 20150217

REACTIONS (3)
  - Acute kidney injury [Recovered/Resolved]
  - Back pain [Recovered/Resolved]
  - Metabolic acidosis [Recovered/Resolved]

NARRATIVE: CASE EVENT DATE: 20150215
